FAERS Safety Report 15895583 (Version 1)
Quarter: 2019Q1

REPORT INFORMATION
  Report Type: Spontaneous
  Country: JP (occurrence: JP)
  Receive Date: 20190131
  Receipt Date: 20190131
  Transmission Date: 20190417
  Serious: Yes (Other)
  Sender: FDA-Public Use
  Company Number: JP-TEVA-2018-JP-947020

PATIENT
  Age: 80 Year
  Sex: Male

DRUGS (6)
  1. FAMOTIDINE. [Concomitant]
     Active Substance: FAMOTIDINE
     Indication: GASTRIC ULCER
     Dosage: 20 MILLIGRAM DAILY;
     Route: 048
     Dates: start: 20181113, end: 20181120
  2. ALLOPURINOL. [Concomitant]
     Active Substance: ALLOPURINOL
     Indication: HYPERURICAEMIA
     Dosage: 100 MILLIGRAM DAILY;
     Route: 048
     Dates: start: 20181113, end: 20181120
  3. BENDAMUSTINE HYDROCHLORIDE. [Suspect]
     Active Substance: BENDAMUSTINE HYDROCHLORIDE
     Dosage: UNK UNK, CYCLIC
     Route: 042
     Dates: start: 20180724, end: 20180725
  4. BENDAMUSTINE HYDROCHLORIDE. [Suspect]
     Active Substance: BENDAMUSTINE HYDROCHLORIDE
     Indication: MANTLE CELL LYMPHOMA
     Dosage: UNK UNK, CYCLIC
     Route: 042
     Dates: start: 20180404, end: 20180405
  5. FLUCONAZOLE. [Concomitant]
     Active Substance: FLUCONAZOLE
     Indication: SKIN INFECTION
     Dosage: 100 MILLIGRAM DAILY;
     Route: 048
     Dates: start: 20181113, end: 20181130
  6. BENDAMUSTINE HYDROCHLORIDE. [Suspect]
     Active Substance: BENDAMUSTINE HYDROCHLORIDE
     Route: 042
     Dates: start: 20181107

REACTIONS (4)
  - Hepatic function abnormal [Recovered/Resolved]
  - Renal disorder [Unknown]
  - Renal impairment [Recovered/Resolved]
  - Pyrexia [Recovered/Resolved]

NARRATIVE: CASE EVENT DATE: 20180724
